FAERS Safety Report 24664597 (Version 1)
Quarter: 2024Q4

REPORT INFORMATION
  Report Type: Spontaneous
  Country: US (occurrence: US)
  Receive Date: 20241126
  Receipt Date: 20241126
  Transmission Date: 20250115
  Serious: No
  Sender: BIOGEN
  Company Number: US-BIOGEN-2020BI00889193

PATIENT
  Sex: Female

DRUGS (5)
  1. TECFIDERA [Suspect]
     Active Substance: DIMETHYL FUMARATE
     Indication: Multiple sclerosis
     Dosage: (MAINTENANCE DOSE) TAKE 1 CAPSULE (240MG)  BY MOUTH TWICE DAILY (START AFTER COMPLETING ONE WEEK ...
     Route: 050
     Dates: start: 20200527
  2. TECFIDERA [Suspect]
     Active Substance: DIMETHYL FUMARATE
     Dosage: TAKE 1 CAPSULE (240MG)  BY MOUTH TWICE DAILY (START AFTER COMPLETING ONE WEEK OF 120 MG DOSAGE)
     Route: 050
  3. VITAMIN D3 [Concomitant]
     Active Substance: CHOLECALCIFEROL
     Route: 050
  4. IRON [Concomitant]
     Active Substance: IRON
     Route: 050
  5. CALCIUM [Concomitant]
     Active Substance: CALCIUM
     Route: 050

REACTIONS (4)
  - Dizziness [Unknown]
  - Feeling abnormal [Unknown]
  - Erythema [Not Recovered/Not Resolved]
  - Pruritus [Not Recovered/Not Resolved]
